FAERS Safety Report 4276581-8 (Version None)
Quarter: 2004Q1

REPORT INFORMATION
  Report Type: 
  Country: None (occurrence: None)
  Receive Date: 20040121
  Receipt Date: 20030626
  Transmission Date: 20041129
  Serious: Yes (Other)
  Sender: FDA-Public Use
  Company Number: WAES 0306GBR00195

PATIENT
  Sex: Female

DRUGS (6)
  1. ACETAMINOPHEN AND PROPOXYPHENE HYDROCHLORIDE [Concomitant]
     Indication: PAIN
     Dates: start: 20030610
  2. BUDESONIDE [Concomitant]
     Indication: RHINITIS ALLERGIC
     Route: 055
     Dates: start: 20010607
  3. FLUTICASONE PROPIONATE [Concomitant]
     Indication: ASTHMA
     Route: 055
     Dates: start: 20030424
  4. GLUCOSAMINE SULFATE [Concomitant]
     Indication: OSTEOARTHRITIS
     Dates: start: 20021213
  5. SINGULAIR [Suspect]
     Indication: ASTHMA
     Route: 048
     Dates: start: 20010601, end: 20030601
  6. PRAVASTATIN SODIUM [Concomitant]
     Indication: HYPERCHOLESTEROLAEMIA
     Dates: start: 20020923

REACTIONS (1)
  - SPINAL COLUMN STENOSIS [None]
